FAERS Safety Report 6807076-2 (Version None)
Quarter: 2010Q2

REPORT INFORMATION
  Report Type: 
  Country: None (occurrence: None)
  Receive Date: 20100629
  Receipt Date: 20080702
  Transmission Date: 20101027
  Serious: No
  Sender: FDA-Public Use
  Company Number: US-PFIZER INC-2008054342

PATIENT
  Sex: Male
  Weight: 122.7 kg

DRUGS (8)
  1. VIAGRA [Suspect]
     Indication: ERECTILE DYSFUNCTION
     Dates: start: 20070101
  2. METFORMIN HCL [Concomitant]
  3. LISINOPRIL [Concomitant]
  4. LAMICTAL [Concomitant]
  5. LIPITOR [Concomitant]
  6. ACTOS [Concomitant]
  7. EFFEXOR [Concomitant]
  8. ALL OTHER THERAPEUTIC PRODUCTS [Concomitant]

REACTIONS (3)
  - DRUG INEFFECTIVE [None]
  - INCORRECT DOSE ADMINISTERED [None]
  - WRONG TECHNIQUE IN DRUG USAGE PROCESS [None]
